FAERS Safety Report 9921049 (Version 2)
Quarter: 2014Q1

REPORT INFORMATION
  Report Type: Report from Study
  Country: BR (occurrence: BR)
  Receive Date: 20140225
  Receipt Date: 20140225
  Transmission Date: 20141002
  Serious: Yes (Hospitalization, Other)
  Sender: FDA-Public Use
  Company Number: BR-BRISTOL-MYERS SQUIBB COMPANY-19863927

PATIENT
  Sex: Female

DRUGS (3)
  1. ORENCIA [Suspect]
     Dates: start: 20121109
  2. OMEPRAZOLE [Concomitant]
  3. CORTICOSTEROID [Concomitant]

REACTIONS (4)
  - Arthropathy [Unknown]
  - Pain in extremity [Unknown]
  - Fatigue [Unknown]
  - Amnesia [Recovered/Resolved]
